FAERS Safety Report 4341288-5 (Version None)
Quarter: 2004Q1

REPORT INFORMATION
  Report Type: 
  Country: None (occurrence: None)
  Receive Date: 20040314
  Receipt Date: 20030505
  Transmission Date: 20041129
  Serious: Yes (Hospitalization)
  Sender: FDA-Public Use
  Company Number: 2003-BP-02824BP(0)

PATIENT
  Sex: Male

DRUGS (2)
  1. MOBIC [Suspect]
     Dosage: 15 MG (NR, QD), PO
     Route: 048
  2. ACETYLSALICYLIC ACID SRT [Concomitant]

REACTIONS (2)
  - HAEMOGLOBIN DECREASED [None]
  - SMALL INTESTINAL HAEMORRHAGE [None]
